FAERS Safety Report 14739185 (Version 1)
Quarter: 2018Q2

REPORT INFORMATION
  Report Type: Spontaneous
  Country: GB (occurrence: GB)
  Receive Date: 20180410
  Receipt Date: 20180410
  Transmission Date: 20180711
  Serious: Yes (Hospitalization)
  Sender: FDA-Public Use
  Company Number: GB-INGENUS PHARMACEUTICALS, LLC-INF201803-000281

PATIENT
  Age: 70 Year
  Sex: Male

DRUGS (8)
  1. CO AMOXICLAV [Concomitant]
     Active Substance: AMOXICILLIN\CLAVULANIC ACID
     Route: 042
  2. ABIRATERONE [Concomitant]
     Active Substance: ABIRATERONE
     Indication: PROSTATE CANCER METASTATIC
  3. PIPERACILLIN [Concomitant]
     Active Substance: PIPERACILLIN
  4. CLINDAMYCIN. [Concomitant]
     Active Substance: CLINDAMYCIN
  5. ENZALUTAMIDE [Concomitant]
     Active Substance: ENZALUTAMIDE
  6. BICALUTAMIDE. [Concomitant]
     Active Substance: BICALUTAMIDE
     Indication: PROSTATE CANCER METASTATIC
  7. DOCETAXEL. [Suspect]
     Active Substance: DOCETAXEL
     Indication: PROSTATE CANCER METASTATIC
  8. TAZOBACTAM [Concomitant]
     Active Substance: TAZOBACTAM

REACTIONS (2)
  - Bone marrow failure [Recovering/Resolving]
  - Pharyngeal abscess [Recovered/Resolved]
